FAERS Safety Report 4361354-8 (Version None)
Quarter: 2004Q2

REPORT INFORMATION
  Report Type: 
  Country: None (occurrence: None)
  Receive Date: 20040517
  Receipt Date: 20040506
  Transmission Date: 20050107
  Serious: No
  Sender: FDA-Public Use
  Company Number: US-SHR-03-017205

PATIENT
  Age: 31 Year
  Sex: Male
  Weight: 88.4 kg

DRUGS (7)
  1. BETASERON (INTERFERON BETA - 1B) INJECTION [Suspect]
     Indication: MULTIPLE SCLEROSIS
     Dosage: 8 MIU, EVERY 2 D, SUBCUTANEOUS
     Route: 058
     Dates: start: 20020701
  2. PROVIGIL [Concomitant]
  3. BACLOFEN [Concomitant]
  4. ULTRACET [Concomitant]
  5. QUININE (QUININE) [Concomitant]
  6. SYNTHROID [Concomitant]
  7. CELEXA [Concomitant]

REACTIONS (5)
  - DRUG EFFECT DECREASED [None]
  - LIMB INJURY [None]
  - PAIN [None]
  - ROTATOR CUFF SYNDROME [None]
  - TENDONITIS [None]
